FAERS Safety Report 9538735 (Version 2)
Quarter: 2013Q3

REPORT INFORMATION
  Report Type: Spontaneous
  Country: US (occurrence: US)
  Receive Date: 20130920
  Receipt Date: 20130920
  Transmission Date: 20140515
  Serious: Yes (Other)
  Sender: FDA-Public Use
  Company Number: PHEH2013US017986

PATIENT
  Sex: Female

DRUGS (15)
  1. TEGRETOL [Suspect]
     Dosage: 200 MG, 5QD
     Dates: start: 1986
  2. NEURONTIN [Concomitant]
     Dosage: 300 MG, TID
  3. ZETIA [Concomitant]
     Dosage: 10 MG, QD
  4. TRAMADOL [Concomitant]
     Dosage: 50 MG, BID
  5. TOPAMAX [Concomitant]
     Dosage: 25 MG, QD
  6. SERTRALINE [Concomitant]
     Dosage: 50 MG, QD
  7. PROTONIX [Concomitant]
     Dosage: 40 MG, BID
  8. VICODIN [Concomitant]
     Indication: PAIN
     Dosage: 5/500
  9. LASIX [Concomitant]
     Dosage: 20 MG, QD
  10. NYSTATIN [Concomitant]
     Dosage: UNK UKN, UNK
  11. HYDROCORTISONE [Concomitant]
     Dosage: UNK UKN, UNK
  12. CALCIUM CITRATE + D [Concomitant]
     Dosage: UNK UKN, UNK
  13. GLUCOSAMINE PLUS CHONDROITIN [Concomitant]
     Dosage: UNK UKN, UNK
  14. FISH OIL [Concomitant]
     Dosage: 1000 MG, UNK
  15. SENNA-S [Concomitant]
     Dosage: UNK UKN, UNK

REACTIONS (5)
  - Parkinson^s disease [Recovering/Resolving]
  - Tremor [Recovering/Resolving]
  - Motor dysfunction [Recovering/Resolving]
  - Dysgraphia [Recovering/Resolving]
  - Fall [Recovering/Resolving]
